FAERS Safety Report 19001712 (Version 1)
Quarter: 2021Q1

REPORT INFORMATION
  Report Type: Spontaneous
  Country: US (occurrence: US)
  Receive Date: 20210312
  Receipt Date: 20210312
  Transmission Date: 20210420
  Serious: No
  Sender: FDA-Public Use
  Company Number: US-FARMAPROD-202012-1757

PATIENT
  Sex: Male

DRUGS (6)
  1. TIMOPTIC [Concomitant]
     Active Substance: TIMOLOL MALEATE
  2. VALACYCLOVIR [Concomitant]
     Active Substance: VALACYCLOVIR HYDROCHLORIDE
  3. OXERVATE [Suspect]
     Active Substance: CENEGERMIN-BKBJ
     Indication: KERATITIS
     Route: 047
     Dates: start: 20201215
  4. AMLODIPINE BESILATE [Concomitant]
     Active Substance: AMLODIPINE BESYLATE
  5. CRESTOR [Concomitant]
     Active Substance: ROSUVASTATIN CALCIUM
  6. DUREZOL [Concomitant]
     Active Substance: DIFLUPREDNATE

REACTIONS (2)
  - Periorbital pain [Unknown]
  - Lacrimation increased [Unknown]
